FAERS Safety Report 5927602-5 (Version None)
Quarter: 2008Q4

REPORT INFORMATION
  Report Type: 
  Country: None (occurrence: None)
  Receive Date: 20081021
  Receipt Date: 20081021
  Transmission Date: 20090506
  Serious: Yes (Hospitalization)
  Sender: FDA-Public Use
  Company Number: None

PATIENT
  Age: 64 Year
  Sex: Female
  Weight: 68 kg

DRUGS (5)
  1. ADRIAMYCIN PFS [Suspect]
     Indication: BREAST CANCER METASTATIC
     Dosage: 355 MG/M2 TOTAL IV
     Route: 042
     Dates: start: 20070101, end: 20071231
  2. ADRIAMYCIN PFS [Suspect]
     Indication: METASTASES TO BONE
     Dosage: 355 MG/M2 TOTAL IV
     Route: 042
     Dates: start: 20070101, end: 20071231
  3. CYTOXAN [Concomitant]
  4. TAXOTERE [Concomitant]
  5. GEMCITABINE HCL [Concomitant]

REACTIONS (6)
  - CARDIAC FAILURE CONGESTIVE [None]
  - CARDIOMYOPATHY [None]
  - LUNG DISORDER [None]
  - OBSTRUCTIVE AIRWAYS DISORDER [None]
  - PLEURAL EFFUSION [None]
  - RESTRICTIVE PULMONARY DISEASE [None]
